FAERS Safety Report 12723399 (Version 2)
Quarter: 2016Q3

REPORT INFORMATION
  Report Type: Spontaneous
  Country: US (occurrence: US)
  Receive Date: 20160908
  Receipt Date: 20160908
  Transmission Date: 20161109
  Serious: Yes (Hospitalization)
  Sender: FDA-Public Use
  Company Number: US-009507513-1504USA011568

PATIENT
  Age: 24 Year
  Sex: Female
  Weight: 70 kg

DRUGS (9)
  1. RITALIN [Concomitant]
     Active Substance: METHYLPHENIDATE HYDROCHLORIDE
     Dosage: UNK
     Route: 042
  2. NAFCILLIN SODIUM. [Concomitant]
     Active Substance: NAFCILLIN SODIUM
     Indication: PRODUCT USED FOR UNKNOWN INDICATION
     Dosage: UNK
  3. VANCOMYCIN [Concomitant]
     Active Substance: VANCOMYCIN
     Dosage: UNK
  4. OXYCODONE [Concomitant]
     Active Substance: OXYCODONE
     Dosage: UNK
     Route: 042
  5. DEMEROL [Concomitant]
     Active Substance: MEPERIDINE HYDROCHLORIDE
     Dosage: UNK
     Route: 042
  6. CUBICIN [Suspect]
     Active Substance: DAPTOMYCIN
     Indication: ENDOCARDITIS
     Dosage: 6 MG/KG, Q24H
     Route: 042
     Dates: start: 20081111, end: 20081218
  7. ZOSYN [Concomitant]
     Active Substance: PIPERACILLIN SODIUM\TAZOBACTAM SODIUM
     Indication: STAPHYLOCOCCAL BACTERAEMIA
     Dosage: UNK
  8. LEVAQUIN [Concomitant]
     Active Substance: LEVOFLOXACIN
     Indication: STAPHYLOCOCCAL BACTERAEMIA
     Dosage: UNK
  9. CUBICIN [Suspect]
     Active Substance: DAPTOMYCIN
     Indication: STAPHYLOCOCCAL BACTERAEMIA

REACTIONS (3)
  - Opiates positive [Unknown]
  - Exposure during pregnancy [Recovered/Resolved]
  - Breech presentation [Recovered/Resolved]

NARRATIVE: CASE EVENT DATE: 20090402
